FAERS Safety Report 20102268 (Version 1)
Quarter: 2021Q4

REPORT INFORMATION
  Report Type: Spontaneous
  Country: CA (occurrence: CA)
  Receive Date: 20211123
  Receipt Date: 20211123
  Transmission Date: 20220303
  Serious: Yes (Other)
  Sender: FDA-Public Use
  Company Number: CA-SAMSUNG BIOEPIS-SB-2021-27124

PATIENT
  Age: 52 Year
  Sex: Female

DRUGS (1)
  1. INFLIXIMAB [Suspect]
     Active Substance: INFLIXIMAB
     Indication: Colitis ulcerative
     Route: 042

REACTIONS (10)
  - Malaise [Not Recovered/Not Resolved]
  - Pruritus [Not Recovered/Not Resolved]
  - Scab [Not Recovered/Not Resolved]
  - Scratch [Not Recovered/Not Resolved]
  - Wound haemorrhage [Not Recovered/Not Resolved]
  - Faecal calprotectin increased [Not Recovered/Not Resolved]
  - Condition aggravated [Not Recovered/Not Resolved]
  - Therapeutic product effect delayed [Not Recovered/Not Resolved]
  - Loss of therapeutic response [Not Recovered/Not Resolved]
  - Off label use [Not Recovered/Not Resolved]
